FAERS Safety Report 13509604 (Version 2)
Quarter: 2019Q3

REPORT INFORMATION
  Report Type: Spontaneous
  Country: US (occurrence: US)
  Receive Date: 20170503
  Receipt Date: 20190913
  Transmission Date: 20191004
  Serious: No
  Sender: FDA-Public Use
  Company Number: US-SA-2017SA025834

PATIENT
  Age: 61 Year
  Sex: Female

DRUGS (15)
  1. LYRICA [Concomitant]
     Active Substance: PREGABALIN
  2. MORPHINE SULFATE. [Concomitant]
     Active Substance: MORPHINE SULFATE
  3. CEPHALEXIN [CEFALEXIN] [Concomitant]
     Active Substance: CEPHALEXIN
  4. CLOPIDOGREL [Concomitant]
     Active Substance: CLOPIDOGREL BISULFATE
  5. HYDROCODONE/ACETAMINOPHEN [Concomitant]
     Active Substance: ACETAMINOPHEN\HYDROCODONE
  6. CRESTOR [Concomitant]
     Active Substance: ROSUVASTATIN CALCIUM
  7. METOPROLOL. [Concomitant]
     Active Substance: METOPROLOL
  8. PRALUENT [Suspect]
     Active Substance: ALIROCUMAB
     Indication: ARTERIOSCLEROSIS
     Dosage: 75 MG,QOW
     Route: 058
     Dates: start: 20160816
  9. FLUCONAZOLE. [Concomitant]
     Active Substance: FLUCONAZOLE
  10. TIZANIDINE. [Concomitant]
     Active Substance: TIZANIDINE
  11. PANTOPRAZOLE [Concomitant]
     Active Substance: PANTOPRAZOLE
  12. GABAPENTIN. [Concomitant]
     Active Substance: GABAPENTIN
  13. CYMBALTA [Concomitant]
     Active Substance: DULOXETINE HYDROCHLORIDE
  14. DULOXETINE. [Concomitant]
     Active Substance: DULOXETINE
  15. FUROSEMIDE. [Concomitant]
     Active Substance: FUROSEMIDE

REACTIONS (2)
  - Product dose omission [Unknown]
  - Nausea [Not Recovered/Not Resolved]

NARRATIVE: CASE EVENT DATE: 20190901
